FAERS Safety Report 9866888 (Version 3)
Quarter: 2014Q1

REPORT INFORMATION
  Report Type: Report from Study
  Country: CA (occurrence: CA)
  Receive Date: 20140204
  Receipt Date: 20140208
  Transmission Date: 20141002
  Serious: Yes (Death, Hospitalization, Other)
  Sender: FDA-Public Use
  Company Number: CA-ROCHE-1333747

PATIENT
  Age: 18 Year
  Sex: Female

DRUGS (6)
  1. RITUXAN [Suspect]
     Indication: ANTI-NEUTROPHIL CYTOPLASMIC ANTIBODY POSITIVE VASCULITIS
     Route: 042
     Dates: start: 20131227, end: 20140110
  2. DILANTIN [Concomitant]
  3. PREDNISONE [Concomitant]
  4. GRAVOL [Concomitant]
  5. BENADRYL (CANADA) [Concomitant]
  6. LASIX [Concomitant]

REACTIONS (7)
  - Cardiac arrest [Fatal]
  - Large intestine perforation [Unknown]
  - Renal failure [Unknown]
  - Hepatic failure [Unknown]
  - Clostridium difficile infection [Unknown]
  - Rash [Not Recovered/Not Resolved]
  - Off label use [Unknown]
